FAERS Safety Report 11195544 (Version 1)
Quarter: 2015Q2

REPORT INFORMATION
  Report Type: Spontaneous
  Country: US (occurrence: US)
  Receive Date: 20150617
  Receipt Date: 20150617
  Transmission Date: 20150821
  Serious: No
  Sender: FDA-Public Use
  Company Number: US-PFIZER INC-2015198469

PATIENT
  Age: 85 Year
  Sex: Female
  Weight: 82.86 kg

DRUGS (1)
  1. IBRANCE [Suspect]
     Active Substance: PALBOCICLIB
     Indication: BREAST CANCER
     Dosage: 125 MG, D1-D21- Q28D
     Route: 048
     Dates: start: 20150527, end: 20150606

REACTIONS (5)
  - Breast cancer [Unknown]
  - Diarrhoea [Unknown]
  - Asthenia [Unknown]
  - Abdominal pain [Unknown]
  - Disease progression [Unknown]
